FAERS Safety Report 24864616 (Version 2)
Quarter: 2025Q1

REPORT INFORMATION
  Report Type: Report from Study
  Country: CZ (occurrence: CZ)
  Receive Date: 20250120
  Receipt Date: 20250328
  Transmission Date: 20250409
  Serious: Yes (Other)
  Sender: ACCORD
  Company Number: CZ-Accord-465017

PATIENT
  Age: 74 Year
  Sex: Male

DRUGS (14)
  1. BORTEZOMIB [Suspect]
     Active Substance: BORTEZOMIB
     Indication: Waldenstrom^s macroglobulinaemia
  2. RITUXIMAB [Suspect]
     Active Substance: RITUXIMAB
     Indication: Waldenstrom^s macroglobulinaemia
  3. DEXAMETHASONE [Suspect]
     Active Substance: DEXAMETHASONE
     Indication: Waldenstrom^s macroglobulinaemia
  4. WARFARIN [Suspect]
     Active Substance: WARFARIN
     Indication: Atrial fibrillation
  5. BENDAMUSTINE [Concomitant]
     Active Substance: BENDAMUSTINE
     Indication: Pancytopenia
  6. REMDESIVIR [Concomitant]
     Active Substance: REMDESIVIR
     Indication: COVID-19
  7. IXAZOMIB [Concomitant]
     Active Substance: IXAZOMIB
     Indication: Waldenstrom^s macroglobulinaemia
     Dates: start: 202310
  8. BENDAMUSTINE [Concomitant]
     Active Substance: BENDAMUSTINE
     Indication: Pancytopenia
     Dates: start: 202012
  9. RITUXIMAB [Suspect]
     Active Substance: RITUXIMAB
     Indication: Pancytopenia
  10. RITUXIMAB [Suspect]
     Active Substance: RITUXIMAB
     Indication: Pancytopenia
     Dates: start: 202209
  11. RITUXIMAB [Suspect]
     Active Substance: RITUXIMAB
     Indication: Pancytopenia
     Dates: start: 202310
  12. DEXAMETHASONE [Suspect]
     Active Substance: DEXAMETHASONE
     Indication: Pancytopenia
     Dates: start: 202209
  13. DEXAMETHASONE [Suspect]
     Active Substance: DEXAMETHASONE
     Indication: Pancytopenia
  14. DEXAMETHASONE [Suspect]
     Active Substance: DEXAMETHASONE
     Indication: Pancytopenia

REACTIONS (6)
  - Neurotoxicity [Unknown]
  - Off label use [Unknown]
  - Coagulopathy [Unknown]
  - Neuropathy peripheral [Unknown]
  - Neuralgia [Unknown]
  - Sleep disorder [Unknown]
